FAERS Safety Report 5391920-2 (Version None)
Quarter: 2007Q3

REPORT INFORMATION
  Report Type: 
  Country: None (occurrence: None)
  Receive Date: 20070720
  Receipt Date: 20070713
  Transmission Date: 20080115
  Serious: Yes (Other)
  Sender: FDA-Public Use
  Company Number: PHEH2007US01587

PATIENT
  Age: 60 Year
  Sex: Female

DRUGS (11)
  1. ZOMETA [Suspect]
     Indication: MULTIPLE MYELOMA
     Dosage: 4 MG - 32 DOSES TOTAL
     Dates: start: 20000901, end: 20050407
  2. REVLIMID [Suspect]
     Indication: MULTIPLE MYELOMA
     Dosage: 5 MG EVERY OTHER DAY
     Dates: start: 20060316
  3. AREDIA [Suspect]
     Indication: MULTIPLE MYELOMA
     Dosage: 60MG - 6 DOSES TOTAL
     Dates: start: 20000707, end: 20010301
  4. MELPHALAN [Concomitant]
     Indication: MULTIPLE MYELOMA
     Dosage: 16 MG Q6-8WEEKS
     Dates: start: 20000701, end: 20001201
  5. MELPHALAN [Concomitant]
     Dosage: 16GM Q6-8WEEKS
     Dates: start: 20011201, end: 20020301
  6. PREDNISONE [Concomitant]
     Indication: MULTIPLE MYELOMA
     Dosage: 100MG /QD Q6-8WEEKS
  7. TOPOTECAN [Concomitant]
     Indication: MULTIPLE MYELOMA
     Dosage: 1.8 MG, UNK
     Dates: start: 20001201, end: 20010401
  8. VINCRISTINE + ADRIAMYCIN + DEXAMETHASONE [Concomitant]
     Dates: start: 20020801, end: 20030201
  9. DECADRON #1 [Concomitant]
     Indication: MULTIPLE MYELOMA
     Dosage: 40MG X 4DAYS Q14DAYS
     Dates: start: 20010301, end: 20011201
  10. DECADRON #1 [Concomitant]
     Dosage: 40MG X 4DAYS Q14DAYS
     Dates: start: 20020301, end: 20020801
  11. THALIDOMIDE [Concomitant]
     Dates: start: 20021201, end: 20030101

REACTIONS (19)
  - ABSCESS [None]
  - ACTINOMYCOSIS [None]
  - BONE DISORDER [None]
  - BONE TRIMMING [None]
  - CONVULSION [None]
  - DEPRESSED LEVEL OF CONSCIOUSNESS [None]
  - LOOSE TOOTH [None]
  - MALIGNANT NEOPLASM PROGRESSION [None]
  - MASS [None]
  - OEDEMA [None]
  - ORAL INTAKE REDUCED [None]
  - ORAL PAIN [None]
  - OSTEOMYELITIS [None]
  - OSTEONECROSIS [None]
  - OSTEOSCLEROSIS [None]
  - PERIODONTAL DISEASE [None]
  - RESORPTION BONE INCREASED [None]
  - SINUSITIS [None]
  - SWELLING [None]
